FAERS Safety Report 4462149-7 (Version None)
Quarter: 2004Q3

REPORT INFORMATION
  Report Type: 
  Country: None (occurrence: None)
  Receive Date: 20040929
  Receipt Date: 20040923
  Transmission Date: 20050211
  Serious: Yes (Other)
  Sender: FDA-Public Use
  Company Number: GB-MERCK-0409GBR00235

PATIENT
  Age: 69 Year
  Sex: Male
  Weight: 79 kg

DRUGS (6)
  1. ALBUTEROL [Concomitant]
     Route: 055
  2. ALBUTEROL [Concomitant]
     Route: 055
  3. BETAMETHASONE VALERATE [Concomitant]
     Route: 061
  4. IPRATROPIUM BROMIDE [Concomitant]
     Route: 055
  5. SINGULAIR [Suspect]
     Indication: RESPIRATORY DISORDER
     Route: 048
     Dates: start: 20040813, end: 20040818
  6. PSYLLIUM HUSK [Concomitant]
     Route: 048

REACTIONS (1)
  - MICTURITION URGENCY [None]
